FAERS Safety Report 25615034 (Version 3)
Quarter: 2025Q3

REPORT INFORMATION
  Report Type: Spontaneous
  Country: EU (occurrence: EU)
  Receive Date: 20250729
  Receipt Date: 20250805
  Transmission Date: 20251021
  Serious: Yes (Hospitalization, Other)
  Sender: TEVA
  Company Number: EU-TEVA-VS-3354423

PATIENT
  Age: 51 Year
  Sex: Female

DRUGS (4)
  1. AZITHROMYCIN [Suspect]
     Active Substance: AZITHROMYCIN
     Indication: Systemic infection
     Dosage: DAILY DOSE: 500 MG, RATIOPHARM
     Route: 048
     Dates: start: 20250624, end: 20250626
  2. CIPROFLOXACIN\FLUOCINOLONE ACETONIDE [Concomitant]
     Active Substance: CIPROFLOXACIN\FLUOCINOLONE ACETONIDE
     Indication: Ear infection
     Dates: start: 20250620, end: 20250624
  3. ESTRADIOL [Concomitant]
     Active Substance: ESTRADIOL
     Indication: Product used for unknown indication
     Dates: start: 202407
  4. PROGESTERONE [Concomitant]
     Active Substance: PROGESTERONE
     Indication: Product used for unknown indication
     Dates: start: 202407

REACTIONS (13)
  - Polyneuropathy [Recovered/Resolved]
  - Liver function test increased [Recovering/Resolving]
  - Gamma-glutamyltransferase increased [Recovering/Resolving]
  - Pyrexia [Recovered/Resolved]
  - C-reactive protein increased [Recovered/Resolved]
  - Platelet count decreased [Unknown]
  - White blood cell count decreased [Unknown]
  - Liver injury [Unknown]
  - Cholangitis [Unknown]
  - Aspartate aminotransferase increased [Recovering/Resolving]
  - Blood bilirubin increased [Recovering/Resolving]
  - Alpha 1 foetoprotein increased [Recovering/Resolving]
  - Hepatic enzyme increased [Recovering/Resolving]

NARRATIVE: CASE EVENT DATE: 20250101
